FAERS Safety Report 4457255-7 (Version None)
Quarter: 2004Q3

REPORT INFORMATION
  Report Type: 
  Country: None (occurrence: None)
  Receive Date: 20040923
  Receipt Date: 20040420
  Transmission Date: 20050211
  Serious: Yes (Hospitalization)
  Sender: FDA-Public Use
  Company Number: PHHO2004JP05769

PATIENT
  Age: 54 Year
  Sex: Female

DRUGS (1)
  1. ESTRADIOL + NORETHISTERONE ACETATE [Suspect]
     Indication: MENOPAUSAL SYMPTOMS
     Dosage: 1 PATCH APPLIED TWICE WEEKLY
     Route: 062
     Dates: start: 20030912, end: 20040309

REACTIONS (7)
  - ADENOCARCINOMA [None]
  - HYSTERECTOMY [None]
  - LYMPHADENECTOMY [None]
  - METASTASES TO LYMPH NODES [None]
  - OMENTECTOMY [None]
  - OOPHORECTOMY BILATERAL [None]
  - OVARIAN CANCER [None]
